FAERS Safety Report 9867605 (Version 2)
Quarter: 2014Q1

REPORT INFORMATION
  Report Type: Spontaneous
  Country: US (occurrence: US)
  Receive Date: 20140204
  Receipt Date: 20140204
  Transmission Date: 20141002
  Serious: No
  Sender: FDA-Public Use
  Company Number: US-GALDERMA-US13002638

PATIENT
  Age: 13 Year
  Sex: Male

DRUGS (2)
  1. EPIDUO (ADAPALENE, BENZOYL PEROXIDE) GEL 0.1% / 2.5% [Suspect]
     Indication: ACNE
     Route: 061
     Dates: start: 2012, end: 20130817
  2. DIAL BAR SOAP [Concomitant]
     Indication: THERAPEUTIC SKIN CARE TOPICAL
     Route: 061

REACTIONS (4)
  - Skin burning sensation [Recovered/Resolved]
  - Erythema [Recovered/Resolved]
  - Expired drug administered [Recovered/Resolved]
  - Emotional distress [Recovered/Resolved]
